FAERS Safety Report 9145289 (Version 1)
Quarter: 2013Q1

REPORT INFORMATION
  Report Type: Report from Study
  Country: US (occurrence: US)
  Receive Date: 20130307
  Receipt Date: 20130307
  Transmission Date: 20140127
  Serious: Yes (Other)
  Sender: FDA-Public Use
  Company Number: US-ABBOTT-13P-163-1056316-00

PATIENT
  Sex: Female
  Weight: 68.1 kg

DRUGS (2)
  1. HUMIRA [Suspect]
     Indication: COLITIS ULCERATIVE
     Route: 058
     Dates: start: 201203, end: 201207
  2. HUMIRA [Suspect]
     Indication: POLYARTHRITIS

REACTIONS (8)
  - Meniscus injury [Recovered/Resolved]
  - Arthralgia [Recovered/Resolved]
  - Benign soft tissue neoplasm [Recovered/Resolved]
  - Vaginal haemorrhage [Recovering/Resolving]
  - Vaginal haemorrhage [Recovered/Resolved]
  - Migraine [Not Recovered/Not Resolved]
  - Weight increased [Not Recovered/Not Resolved]
  - Off label use [Unknown]
